FAERS Safety Report 19947779 (Version 1)
Quarter: 2021Q4

REPORT INFORMATION
  Report Type: Spontaneous
  Country: DE (occurrence: DE)
  Receive Date: 20211012
  Receipt Date: 20211012
  Transmission Date: 20220303
  Serious: Yes (Hospitalization)
  Sender: FDA-Public Use
  Company Number: DE-UCBSA-2021029369

PATIENT

DRUGS (1)
  1. LEVETIRACETAM [Suspect]
     Active Substance: LEVETIRACETAM
     Indication: Seizure
     Dosage: UNK
     Dates: end: 2018

REACTIONS (3)
  - Hospitalisation [Unknown]
  - Fatigue [Unknown]
  - Mental disorder [Unknown]

NARRATIVE: CASE EVENT DATE: 20180101
